FAERS Safety Report 21436526 (Version 1)
Quarter: 2022Q4

REPORT INFORMATION
  Report Type: Report from Study
  Country: IT (occurrence: IT)
  Receive Date: 20221010
  Receipt Date: 20221010
  Transmission Date: 20230113
  Serious: Yes (Hospitalization)
  Sender: FDA-Public Use
  Company Number: None

PATIENT
  Age: 16 Year
  Sex: Female

DRUGS (4)
  1. TAVOR (LORAZEPAM) [Suspect]
     Active Substance: LORAZEPAM
     Indication: Anxiety
     Dosage: 2 TABLETS 2.5MG; TAVOR ORO AS NEEDED FOR DISTRESS, 2 SUBLINGUAL TABLETS, REPEATABLE AFTER 6 HOURS
     Dates: start: 20220312
  2. SERTRALINE [Suspect]
     Active Substance: SERTRALINE HYDROCHLORIDE
     Dosage: ABOUT 7:30 PM REFERRED TO HAVE TAKEN 3 TABLETS OF SERTRALINE
     Route: 048
     Dates: start: 20220908, end: 20220908
  3. ARIPIPRAZOLE [Suspect]
     Active Substance: ARIPIPRAZOLE
     Indication: Depression
     Dosage: ABOUT 1/4 BOTTLE OF ARIPIPRAZOLE SYRUP (CHRONIC THERAPY DOSAGE: 7.5MG/DAY)
     Route: 048
  4. FLUOXETINE [Suspect]
     Active Substance: FLUOXETINE HYDROCHLORIDE
     Indication: Depression
     Dosage: TAKING 5 TABLETS (CHRONIC FLUOXETINE THERAPY 40MG IN THE MORNING)
     Route: 048

REACTIONS (3)
  - Asthenia [Unknown]
  - Nausea [Unknown]
  - Malaise [Unknown]

NARRATIVE: CASE EVENT DATE: 20220908
